FAERS Safety Report 8089949-9 (Version None)
Quarter: 2012Q1

REPORT INFORMATION
  Report Type: 
  Country: None (occurrence: None)
  Receive Date: 20120129
  Receipt Date: 20110921
  Transmission Date: 20120608
  Serious: No
  Sender: FDA-Public Use
  Company Number: US-ABBOTT-11P-163-0857149-00

PATIENT
  Sex: Male
  Weight: 124.4 kg

DRUGS (3)
  1. HUMIRA [Suspect]
     Indication: PSORIASIS
     Dates: start: 20110902
  2. UNKNOWN MEDICATIONS [Concomitant]
     Indication: BLOOD PRESSURE
  3. UNKNOWN MEDICATIONS [Concomitant]
     Indication: DIABETES MELLITUS

REACTIONS (4)
  - NASOPHARYNGITIS [None]
  - PYREXIA [None]
  - NASAL CONGESTION [None]
  - COUGH [None]
